FAERS Safety Report 5032128-X (Version None)
Quarter: 2006Q2

REPORT INFORMATION
  Report Type: 
  Country: None (occurrence: None)
  Receive Date: 20060619
  Receipt Date: 20060608
  Transmission Date: 20061013
  Serious: Yes (Hospitalization)
  Sender: FDA-Public Use
  Company Number: URSO-2006-022

PATIENT
  Age: 6 Year
  Sex: Male

DRUGS (1)
  1. URSO 250 [Suspect]
     Indication: HEPATITIS
     Dosage: 250 MG BID
     Dates: start: 20060330, end: 20060413

REACTIONS (5)
  - PLATELET COUNT DECREASED [None]
  - PRURITUS [None]
  - RASH ERYTHEMATOUS [None]
  - RED BLOOD CELL COUNT DECREASED [None]
  - WHITE BLOOD CELL COUNT DECREASED [None]
